FAERS Safety Report 8225693-2 (Version None)
Quarter: 2012Q1

REPORT INFORMATION
  Report Type: 
  Country: None (occurrence: None)
  Receive Date: 20120321
  Receipt Date: 20120312
  Transmission Date: 20120608
  Serious: Yes (Hospitalization, Other)
  Sender: FDA-Public Use
  Company Number: US-ELI_LILLY_AND_COMPANY-US201203002893

PATIENT
  Sex: Female

DRUGS (7)
  1. HYDROXYCHLOROQUINE SULFATE [Concomitant]
     Dosage: UNK UNK, QD
  2. CALCIUM W/VITAMIN D NOS [Concomitant]
     Dosage: 600 MG, UNK
  3. FORTEO [Suspect]
     Indication: OSTEOPOROSIS
     Dosage: 20 UG, QD
     Route: 065
     Dates: start: 20111215
  4. ONE A DAY                          /02262701/ [Concomitant]
  5. DILTIAZEM HCL [Concomitant]
     Route: 022
  6. PREDNISONE TAB [Concomitant]
     Dosage: 5 MG, BID
  7. FISH OIL [Concomitant]
     Dosage: 1000 MG, UNK

REACTIONS (10)
  - ATRIAL FIBRILLATION [None]
  - FATIGUE [None]
  - HEART RATE INCREASED [None]
  - WHEEZING [None]
  - INJECTION SITE RASH [None]
  - MALAISE [None]
  - DYSPNOEA [None]
  - LUNG DISORDER [None]
  - CARDIAC DISORDER [None]
  - THROMBOSIS [None]
